FAERS Safety Report 13575693 (Version 1)
Quarter: 2017Q2

REPORT INFORMATION
  Report Type: Spontaneous
  Country: US (occurrence: US)
  Receive Date: 20170524
  Receipt Date: 20170524
  Transmission Date: 20170830
  Serious: No
  Sender: FDA-Public Use
  Company Number: US-ACCORD-049251

PATIENT

DRUGS (1)
  1. QUETIAPINE. [Suspect]
     Active Substance: QUETIAPINE
     Indication: MIGRAINE
     Dosage: BOTTLE 60 ?POTENCY: 400 MG

REACTIONS (2)
  - Drug ineffective [Unknown]
  - Off label use [Unknown]
